FAERS Safety Report 4958787-5 (Version None)
Quarter: 2006Q1

REPORT INFORMATION
  Report Type: 
  Country: None (occurrence: None)
  Receive Date: 20060127
  Receipt Date: 20041230
  Transmission Date: 20060701
  Serious: Yes (Hospitalization)
  Sender: FDA-Public Use
  Company Number: 04-12-1825

PATIENT
  Age: 51 Year
  Sex: Male

DRUGS (1)
  1. CLOZAPINE [Suspect]
     Indication: SCHIZOAFFECTIVE DISORDER
     Dosage: 200-600MG QD, ORAL
     Route: 048
     Dates: start: 20000501

REACTIONS (2)
  - REGRESSIVE BEHAVIOUR [None]
  - SUICIDAL IDEATION [None]
